FAERS Safety Report 17520430 (Version 1)
Quarter: 2020Q1

REPORT INFORMATION
  Report Type: Spontaneous
  Country: US (occurrence: US)
  Receive Date: 20200310
  Receipt Date: 20200310
  Transmission Date: 20200409
  Serious: Yes (Death, Hospitalization)
  Sender: FDA-Public Use
  Company Number: US-BAYER-2019-075780

PATIENT
  Age: 70 Year
  Sex: Male

DRUGS (6)
  1. ACETYLSALICYLIC ACID [Suspect]
     Active Substance: ASPIRIN
     Indication: PRODUCT USED FOR UNKNOWN INDICATION
     Dosage: 81 MG, UNK
     Route: 065
     Dates: start: 20160914, end: 20160924
  2. XARELTO [Suspect]
     Active Substance: RIVAROXABAN
     Indication: PERIPHERAL VASCULAR DISORDER
     Dosage: 15 MG, QD
     Route: 048
     Dates: start: 20160108, end: 20160924
  3. XARELTO [Suspect]
     Active Substance: RIVAROXABAN
     Indication: CHEST PAIN
  4. XARELTO [Suspect]
     Active Substance: RIVAROXABAN
     Indication: CEREBROVASCULAR ACCIDENT PROPHYLAXIS
  5. XARELTO [Suspect]
     Active Substance: RIVAROXABAN
     Indication: ATRIAL FIBRILLATION
  6. PLAVIX [Suspect]
     Active Substance: CLOPIDOGREL BISULFATE
     Indication: PRODUCT USED FOR UNKNOWN INDICATION
     Dosage: 75 MG, QD
     Route: 048
     Dates: start: 20160913, end: 20160924

REACTIONS (6)
  - Cerebral haemorrhage [Fatal]
  - Cellulitis [Unknown]
  - Chest pain [Unknown]
  - Catheter site haemorrhage [Unknown]
  - Subdural haematoma [Fatal]
  - Septic shock [Unknown]

NARRATIVE: CASE EVENT DATE: 20160913
